FAERS Safety Report 7448286-3 (Version None)
Quarter: 2011Q2

REPORT INFORMATION
  Report Type: 
  Country: None (occurrence: None)
  Receive Date: 20110429
  Receipt Date: 20110429
  Transmission Date: 20111010
  Serious: Yes (Hospitalization, Other)
  Sender: FDA-Public Use
  Company Number: FR-ABBOTT-11P-056-0721231-00

PATIENT
  Sex: Female

DRUGS (24)
  1. LIPANTHYL [Suspect]
     Indication: PRODUCT USED FOR UNKNOWN INDICATION
     Route: 048
     Dates: end: 20110216
  2. AMOXICILLIN [Suspect]
     Indication: PRODUCT USED FOR UNKNOWN INDICATION
     Route: 048
     Dates: start: 20110222, end: 20110303
  3. LEVOTHYROX [Concomitant]
     Indication: PRODUCT USED FOR UNKNOWN INDICATION
     Dosage: DAILY DOSE: 25MG
     Route: 048
     Dates: end: 20110216
  4. FORLAX [Concomitant]
     Indication: PRODUCT USED FOR UNKNOWN INDICATION
     Route: 048
     Dates: start: 20110223, end: 20110228
  5. SEROPRAM [Concomitant]
     Indication: PRODUCT USED FOR UNKNOWN INDICATION
     Route: 048
     Dates: start: 20110223
  6. LIPANTHYL [Suspect]
     Route: 048
     Dates: start: 20110201, end: 20110223
  7. ATARAX [Concomitant]
     Dosage: DAILY DOSE: 25MG
     Route: 048
     Dates: start: 20110201, end: 20110222
  8. TENORMIN [Concomitant]
     Indication: PRODUCT USED FOR UNKNOWN INDICATION
     Dates: end: 20110216
  9. MEPRONIZINE [Concomitant]
     Indication: PRODUCT USED FOR UNKNOWN INDICATION
     Dates: end: 20110216
  10. EUPANTOL [Suspect]
     Indication: HELICOBACTER INFECTION
     Route: 048
     Dates: start: 20110217, end: 20110228
  11. XANAX [Concomitant]
     Dosage: DAILY DOSE: 1MG
     Route: 048
     Dates: start: 20110201, end: 20110223
  12. ATARAX [Concomitant]
     Indication: PRODUCT USED FOR UNKNOWN INDICATION
     Route: 048
     Dates: end: 20110216
  13. HALDOL [Concomitant]
     Indication: PRODUCT USED FOR UNKNOWN INDICATION
     Dosage: 3 DROPS DAILY
     Dates: end: 20110216
  14. DAFALGAN [Concomitant]
     Indication: PRODUCT USED FOR UNKNOWN INDICATION
     Dates: end: 20110216
  15. TIMOFEROL [Concomitant]
     Indication: PRODUCT USED FOR UNKNOWN INDICATION
     Dosage: 2 DOSAGE FORMS DAILY
     Dates: end: 20110216
  16. DIFFU-K [Concomitant]
     Indication: PRODUCT USED FOR UNKNOWN INDICATION
     Route: 048
     Dates: start: 20110221, end: 20110222
  17. EUPANTOL [Suspect]
     Route: 048
     Dates: end: 20110225
  18. COAPROVEL [Suspect]
     Indication: PRODUCT USED FOR UNKNOWN INDICATION
     Dosage: DAILY DOSE: 1-300MG/25 MG
     Route: 048
     Dates: start: 20110201, end: 20110216
  19. COAPROVEL [Suspect]
     Route: 048
     Dates: start: 20110201, end: 20110223
  20. XANAX [Concomitant]
     Indication: PRODUCT USED FOR UNKNOWN INDICATION
     Dosage: DAILY DOSE: 1MG
     Dates: end: 20110216
  21. KARDEGIC [Concomitant]
     Indication: PRODUCT USED FOR UNKNOWN INDICATION
  22. AERIUS [Concomitant]
     Indication: PRODUCT USED FOR UNKNOWN INDICATION
  23. ZECLAR [Suspect]
     Indication: PRODUCT USED FOR UNKNOWN INDICATION
     Route: 048
     Dates: start: 20110223, end: 20110301
  24. INNOHEP [Concomitant]
     Indication: THROMBOSIS
     Route: 058
     Dates: start: 20110221, end: 20110223

REACTIONS (8)
  - GASTROINTESTINAL HAEMORRHAGE [None]
  - GASTROINTESTINAL ULCER [None]
  - GASTRIC ULCER [None]
  - RENAL FAILURE ACUTE [None]
  - SHOCK HAEMORRHAGIC [None]
  - RENAL TUBULAR NECROSIS [None]
  - ESCHERICHIA URINARY TRACT INFECTION [None]
  - HAEMATEMESIS [None]
